FAERS Safety Report 19106682 (Version 1)
Quarter: 2021Q2

REPORT INFORMATION
  Report Type: Spontaneous
  Country: US (occurrence: US)
  Receive Date: 20210407
  Receipt Date: 20210407
  Transmission Date: 20210717
  Serious: No
  Sender: FDA-Public Use
  Company Number: None

PATIENT
  Age: 28 Year
  Sex: Female
  Weight: 99.45 kg

DRUGS (2)
  1. LORYNA [Suspect]
     Active Substance: DROSPIRENONE\ETHINYL ESTRADIOL
     Indication: PREMENSTRUAL DYSPHORIC DISORDER
     Dosage: ?          QUANTITY:28 TABLET(S);?
     Route: 048
     Dates: start: 20210331, end: 20210405
  2. PRENATAL [Concomitant]
     Active Substance: VITAMINS

REACTIONS (4)
  - Visual impairment [None]
  - Nausea [None]
  - Headache [None]
  - Dizziness [None]

NARRATIVE: CASE EVENT DATE: 20210403
